FAERS Safety Report 24121506 (Version 2)
Quarter: 2024Q3

REPORT INFORMATION
  Report Type: Spontaneous
  Country: US (occurrence: US)
  Receive Date: 20240722
  Receipt Date: 20240828
  Transmission Date: 20241016
  Serious: Yes (Hospitalization, Other)
  Sender: BRISTOL MYERS SQUIBB
  Company Number: US-BRISTOL-MYERS SQUIBB COMPANY-2024-114717

PATIENT
  Age: 82 Year
  Sex: Male
  Weight: 66.2 kg

DRUGS (5)
  1. ELIQUIS [Suspect]
     Active Substance: APIXABAN
     Indication: Thrombosis prophylaxis
     Dates: start: 202406, end: 20240712
  2. TAZEMETOSTAT [Suspect]
     Active Substance: TAZEMETOSTAT
     Indication: Prostate cancer
     Route: 048
     Dates: start: 20231206, end: 20240712
  3. TAZEMETOSTAT [Suspect]
     Active Substance: TAZEMETOSTAT
     Route: 048
     Dates: start: 20240714
  4. TALAZOPARIB [Suspect]
     Active Substance: TALAZOPARIB
     Indication: Prostate cancer
     Route: 048
     Dates: start: 20231206, end: 20240712
  5. TALAZOPARIB [Suspect]
     Active Substance: TALAZOPARIB
     Route: 048
     Dates: start: 20240714

REACTIONS (3)
  - Urinary retention [Recovered/Resolved]
  - Haematuria [Recovered/Resolved]
  - Off label use [Unknown]

NARRATIVE: CASE EVENT DATE: 20240710
